FAERS Safety Report 9807544 (Version 1)
Quarter: 2014Q1

REPORT INFORMATION
  Report Type: Spontaneous
  Country: US (occurrence: US)
  Receive Date: 20140110
  Receipt Date: 20140110
  Transmission Date: 20141002
  Serious: No
  Sender: FDA-Public Use
  Company Number: US-SANOFI-AVENTIS-2013SA012697

PATIENT
  Age: 80 Year
  Sex: Female
  Weight: 75 kg

DRUGS (3)
  1. PLAVIX [Suspect]
     Route: 048
     Dates: start: 2007
  2. ASPIRIN [Concomitant]
  3. METAMUCIL [Concomitant]
     Dates: start: 20130206

REACTIONS (7)
  - Abdominal pain lower [Unknown]
  - Dyspepsia [Unknown]
  - Abnormal faeces [Unknown]
  - Flatulence [Unknown]
  - Gastrointestinal disorder [Unknown]
  - Product substitution issue [Unknown]
  - Product substitution issue [Unknown]
